FAERS Safety Report 6763609-6 (Version None)
Quarter: 2010Q2

REPORT INFORMATION
  Report Type: 
  Country: None (occurrence: None)
  Receive Date: 20100610
  Receipt Date: 20100527
  Transmission Date: 20101027
  Serious: Yes (Other)
  Sender: FDA-Public Use
  Company Number: GB-CELGENEUS-167-20785-10050827

PATIENT
  Sex: Male

DRUGS (18)
  1. THALIDOMIDE [Suspect]
     Indication: MULTIPLE MYELOMA
     Route: 048
     Dates: start: 20080326
  2. THALIDOMIDE [Suspect]
     Route: 048
     Dates: start: 20080229
  3. ALLOPURINOL [Concomitant]
     Indication: DRUG USE FOR UNKNOWN INDICATION
     Route: 065
  4. FUROSEMIDE [Concomitant]
     Indication: DRUG USE FOR UNKNOWN INDICATION
     Route: 065
  5. DOXAZOSIN MESYLATE [Concomitant]
     Indication: HYPERTENSION
     Route: 065
  6. DOXAZOSIN MESYLATE [Concomitant]
  7. INDAPAMIDE [Concomitant]
     Indication: HYPERTENSION
     Route: 065
  8. INDAPAMIDE [Concomitant]
  9. AMLODIPINE [Concomitant]
     Indication: HYPERTENSION
     Route: 065
  10. AMLODIPINE [Concomitant]
  11. RAMIPRIL [Concomitant]
     Indication: HYPERTENSION
     Route: 065
  12. RAMIPRIL [Concomitant]
  13. CYCLOPHOSPHAMIDE [Concomitant]
     Indication: MULTIPLE MYELOMA
     Route: 065
     Dates: start: 20080229
  14. DEXAMETHASONE [Concomitant]
     Indication: MULTIPLE MYELOMA
     Route: 065
     Dates: start: 20080229
  15. OMEPRAZOLE [Concomitant]
     Indication: DRUG USE FOR UNKNOWN INDICATION
     Route: 065
     Dates: start: 20080229
  16. ACYCLOVIR [Concomitant]
     Indication: DRUG USE FOR UNKNOWN INDICATION
     Route: 065
     Dates: start: 20080229
  17. COTRIM [Concomitant]
     Indication: DRUG USE FOR UNKNOWN INDICATION
     Route: 065
     Dates: start: 20080229
  18. ASPIRINE [Concomitant]
     Indication: DRUG USE FOR UNKNOWN INDICATION
     Route: 065

REACTIONS (3)
  - CONSTIPATION [None]
  - OEDEMA PERIPHERAL [None]
  - VENTRICULAR EXTRASYSTOLES [None]
